FAERS Safety Report 14785778 (Version 1)
Quarter: 2018Q2

REPORT INFORMATION
  Report Type: Report from Study
  Country: US (occurrence: BR)
  Receive Date: 20180420
  Receipt Date: 20180420
  Transmission Date: 20180711
  Serious: Yes (Death, Other)
  Sender: FDA-Public Use
  Company Number: US-SUNOVION-2018SUN001500

PATIENT
  Sex: Male

DRUGS (1)
  1. INDACATEROL AND GLYCOPYRROLATE [Suspect]
     Active Substance: GLYCOPYRROLATE\INDACATEROL MALEATE
     Indication: EMPHYSEMA
     Dosage: 1 DF, QD (110/50MCG)
     Route: 055
     Dates: start: 20171019

REACTIONS (2)
  - Body height decreased [Unknown]
  - Myocardial infarction [Fatal]
